FAERS Safety Report 9226968 (Version 3)
Quarter: 2014Q1

REPORT INFORMATION
  Report Type: Spontaneous
  Country: US (occurrence: US)
  Receive Date: 20130412
  Receipt Date: 20140205
  Transmission Date: 20141002
  Serious: No
  Sender: FDA-Public Use
  Company Number: US-BIOGENIDEC-2013BI031995

PATIENT
  Age: 65 Year
  Sex: Female

DRUGS (2)
  1. TYSABRI [Suspect]
     Indication: MULTIPLE SCLEROSIS
     Route: 042
  2. TYSABRI [Suspect]
     Indication: MULTIPLE SCLEROSIS
     Route: 042
     Dates: start: 20130315

REACTIONS (5)
  - Poor venous access [Not Recovered/Not Resolved]
  - Incontinence [Not Recovered/Not Resolved]
  - Fluid retention [Recovered/Resolved]
  - Micturition urgency [Not Recovered/Not Resolved]
  - Cystitis [Not Recovered/Not Resolved]
